FAERS Safety Report 5126256-8 (Version None)
Quarter: 2006Q4

REPORT INFORMATION
  Report Type: 
  Country: None (occurrence: None)
  Receive Date: 20061012
  Receipt Date: 20061003
  Transmission Date: 20070319
  Serious: Yes (Death, Hospitalization)
  Sender: FDA-Public Use
  Company Number: HK-ABBOTT-06P-075-0346109-00

PATIENT
  Age: 41 Year
  Sex: Male

DRUGS (3)
  1. COLCHICINE [Suspect]
     Indication: DRUG USE FOR UNKNOWN INDICATION
     Dosage: 40 MG, ONCE, BOLUS
  2. COLCHICINE [Suspect]
     Dosage: 1.0 - 1.5 MG DAILY
  3. JOSAMYCIN [Interacting]
     Indication: DRUG USE FOR UNKNOWN INDICATION
     Dosage: 10 GRAM, ONCE, BOLUS
     Route: 065

REACTIONS (4)
  - DRUG INTERACTION [None]
  - MULTI-ORGAN FAILURE [None]
  - SUICIDE ATTEMPT [None]
  - VOMITING [None]
